FAERS Safety Report 15517224 (Version 4)
Quarter: 2018Q4

REPORT INFORMATION
  Report Type: Report from Study
  Country: GB (occurrence: GB)
  Receive Date: 20181017
  Receipt Date: 20181214
  Transmission Date: 20190205
  Serious: Yes (Hospitalization, Other)
  Sender: FDA-Public Use
  Company Number: GB-IPSEN BIOPHARMACEUTICALS, INC.-2018-15668

PATIENT
  Sex: Female

DRUGS (2)
  1. SOMATULINE AUTOGEL 120MG [Suspect]
     Active Substance: LANREOTIDE ACETATE
  2. SOMATULINE AUTOGEL 120MG [Suspect]
     Active Substance: LANREOTIDE ACETATE
     Indication: NEUROENDOCRINE TUMOUR
     Route: 058
     Dates: start: 2018

REACTIONS (7)
  - Adverse drug reaction [Unknown]
  - Pain [Unknown]
  - Hot flush [Not Recovered/Not Resolved]
  - Inappropriate schedule of product administration [Unknown]
  - Hyperhidrosis [Not Recovered/Not Resolved]
  - Neoplasm [Unknown]
  - Asthenia [Not Recovered/Not Resolved]
